FAERS Safety Report 7803345-8 (Version None)
Quarter: 2011Q4

REPORT INFORMATION
  Report Type: 
  Country: None (occurrence: None)
  Receive Date: 20111007
  Receipt Date: 20110927
  Transmission Date: 20120403
  Serious: Yes (Other)
  Sender: FDA-Public Use
  Company Number: PHEH2011US05390

PATIENT
  Sex: Male

DRUGS (2)
  1. NEXIUM [Concomitant]
     Route: 065
  2. GLEEVEC [Suspect]
     Dosage: 400 MG, 1XDAY
     Route: 065
     Dates: start: 20050430

REACTIONS (3)
  - OCULAR HYPERAEMIA [None]
  - EYE HAEMORRHAGE [None]
  - EYE SWELLING [None]
